FAERS Safety Report 9797018 (Version 4)
Quarter: 2014Q1

REPORT INFORMATION
  Report Type: Spontaneous
  Country: US (occurrence: US)
  Receive Date: 20140105
  Receipt Date: 20140219
  Transmission Date: 20141002
  Serious: Yes (Death)
  Sender: FDA-Public Use
  Company Number: US-BRISTOL-MYERS SQUIBB COMPANY-18547737

PATIENT
  Age: 61 Year
  Sex: Female

DRUGS (7)
  1. BYETTA PEN DISPOSABLE [Suspect]
     Indication: TYPE 2 DIABETES MELLITUS
     Route: 058
     Dates: start: 20071212, end: 20081118
  2. METFORMIN HCL [Suspect]
     Route: 048
  3. NOVOLOG [Suspect]
     Dosage: 30/30
  4. ZOSYN [Concomitant]
     Route: 042
  5. PEPCID [Concomitant]
     Route: 042
  6. NORVAS [Concomitant]
     Route: 048
  7. METOPROLOL [Concomitant]
     Route: 048

REACTIONS (1)
  - Pancreatic carcinoma [Fatal]
